FAERS Safety Report 13502666 (Version 3)
Quarter: 2017Q3

REPORT INFORMATION
  Report Type: Spontaneous
  Country: JP (occurrence: JP)
  Receive Date: 20170502
  Receipt Date: 20170801
  Transmission Date: 20171127
  Serious: Yes (Other)
  Sender: FDA-Public Use
  Company Number: JP-ELI_LILLY_AND_COMPANY-JP201704011569

PATIENT
  Age: 52 Year
  Sex: Female

DRUGS (4)
  1. JANUVIA [Concomitant]
     Active Substance: SITAGLIPTIN PHOSPHATE
     Dosage: 100 MG, UNKNOWN
     Route: 048
     Dates: start: 20140328
  2. INSULIN GLARGINE [Suspect]
     Active Substance: INSULIN GLARGINE
     Indication: TYPE 2 DIABETES MELLITUS
     Dosage: 50 IU, UNK
     Route: 058
     Dates: start: 20160530, end: 20170428
  3. NOVORAPID [Concomitant]
     Active Substance: INSULIN ASPART
     Dosage: 52 IU, UNKNOWN
     Route: 058
     Dates: start: 20140825
  4. SEIBULE [Concomitant]
     Active Substance: MIGLITOL
     Dosage: 150 MG, UNKNOWN
     Route: 048
     Dates: start: 20130525

REACTIONS (2)
  - Hyperglycaemia [Recovered/Resolved]
  - Drug dose omission [Recovered/Resolved]

NARRATIVE: CASE EVENT DATE: 201704
